FAERS Safety Report 8795178 (Version 1)
Quarter: 2012Q4

REPORT INFORMATION
  Report Type: 
  Country: CO (occurrence: CO)
  Receive Date: 20120918
  Receipt Date: 20120918
  Transmission Date: 20130627
  Serious: Yes (Other)
  Sender: FDA-Public Use
  Company Number: CO-ROCHE-1126827

PATIENT
  Age: 7 Year
  Sex: Female

DRUGS (4)
  1. XOLAIR [Suspect]
     Indication: ASTHMA
     Dosage: 2 AMPOULES
     Route: 058
     Dates: start: 201109
  2. SALBUTAMOL [Concomitant]
  3. BECLOMETHASONE [Concomitant]
  4. MONTELUKAST [Concomitant]
     Route: 065

REACTIONS (2)
  - Asthmatic crisis [Recovering/Resolving]
  - Cough [Recovered/Resolved]
